FAERS Safety Report 7227745-2 (Version None)
Quarter: 2011Q1

REPORT INFORMATION
  Report Type: 
  Country: None (occurrence: None)
  Receive Date: 20110114
  Receipt Date: 20110114
  Transmission Date: 20110831
  Serious: Yes (Other)
  Sender: FDA-Public Use
  Company Number: GB-ABBOTT-10P-167-0690649-00

PATIENT
  Sex: Male

DRUGS (1)
  1. HUMIRA [Suspect]
     Indication: ANKYLOSING SPONDYLITIS
     Dates: end: 20100801

REACTIONS (6)
  - MUSCLE TWITCHING [None]
  - PULMONARY EMBOLISM [None]
  - MUSCLE SPASMS [None]
  - EXTRASYSTOLES [None]
  - TREMOR [None]
  - DEEP VEIN THROMBOSIS [None]
